FAERS Safety Report 8785466 (Version 2)
Quarter: 2012Q4

REPORT INFORMATION
  Report Type: 
  Country: JP (occurrence: JP)
  Receive Date: 20120914
  Receipt Date: 20120914
  Transmission Date: 20130627
  Serious: Yes (Hospitalization)
  Sender: FDA-Public Use
  Company Number: JP-NAPPMUNDI-DEU-2012-0009342

PATIENT
  Age: 94 Year
  Sex: Female

DRUGS (2)
  1. BUPRENORPHINE [Suspect]
     Indication: BACK PAIN
     Dosage: 10 mcg, q1h
     Route: 062
     Dates: start: 20120703, end: 20120710
  2. BUPRENORPHINE [Suspect]
     Dosage: 5 mcg, q1h
     Route: 062
     Dates: start: 20120626, end: 20120702

REACTIONS (4)
  - Nausea [Recovering/Resolving]
  - Diabetes mellitus [Unknown]
  - Decreased appetite [Unknown]
  - Dehydration [Unknown]
